FAERS Safety Report 10229233 (Version 1)
Quarter: 2014Q2

REPORT INFORMATION
  Report Type: Spontaneous
  Country: US (occurrence: US)
  Receive Date: 20140611
  Receipt Date: 20140611
  Transmission Date: 20141212
  Serious: No
  Sender: FDA-Public Use
  Company Number: US-ASTRAZENECA-2014SE38429

PATIENT
  Age: 58 Year
  Sex: Male
  Weight: 95.7 kg

DRUGS (11)
  1. NEXIUM [Suspect]
     Indication: GASTROOESOPHAGEAL REFLUX DISEASE
     Dosage: DAILY
     Route: 048
     Dates: start: 2006, end: 2011
  2. OMEPRAZOLE [Suspect]
     Indication: DYSPEPSIA
     Route: 048
     Dates: start: 2011
  3. OMEPRAZOLE [Suspect]
     Indication: GASTROOESOPHAGEAL REFLUX DISEASE
     Route: 048
     Dates: start: 2011
  4. OMEPRAZOLE [Suspect]
     Indication: DYSPEPSIA
     Route: 048
     Dates: start: 2011
  5. OMEPRAZOLE [Suspect]
     Indication: DYSPEPSIA
     Dosage: SANDOZI
     Route: 048
     Dates: start: 2011
  6. OMEPRAZOLE [Suspect]
     Indication: GASTROOESOPHAGEAL REFLUX DISEASE
     Dosage: SANDOZI
     Route: 048
     Dates: start: 2011
  7. OMEPRAZOLE [Suspect]
     Indication: DYSPEPSIA
     Dosage: SANDOZI
     Route: 048
     Dates: start: 2011
  8. METFORMIN [Concomitant]
     Indication: DIABETES MELLITUS
     Route: 048
     Dates: start: 2004
  9. HYDROCHLOROTHIAZIDE [Concomitant]
     Indication: HYPERTENSION
     Route: 048
     Dates: start: 2004
  10. GABAPENTIN [Concomitant]
     Indication: HYPOAESTHESIA
     Route: 048
     Dates: start: 2010
  11. GABAPENTIN [Concomitant]
     Indication: PARAESTHESIA
     Route: 048
     Dates: start: 2010

REACTIONS (4)
  - Hypoaesthesia [Not Recovered/Not Resolved]
  - Paraesthesia [Not Recovered/Not Resolved]
  - Abdominal pain upper [Not Recovered/Not Resolved]
  - Drug dose omission [Not Recovered/Not Resolved]
